FAERS Safety Report 5186264-8 (Version None)
Quarter: 2006Q4

REPORT INFORMATION
  Report Type: 
  Country: None (occurrence: None)
  Receive Date: 20061213
  Receipt Date: 20061115
  Transmission Date: 20070319
  Serious: Yes (Other)
  Sender: FDA-Public Use
  Company Number: 2006SP006789

PATIENT
  Age: 20 Year
  Sex: Male

DRUGS (7)
  1. CLARITIN REDITABS [Suspect]
     Indication: ASTHMA
     Dosage: 10 MG; QD; PO
     Route: 048
     Dates: start: 20061102, end: 20061110
  2. CLARITIN REDITABS [Suspect]
     Indication: ATOPY
     Dosage: 10 MG; QD; PO
     Route: 048
     Dates: start: 20061102, end: 20061110
  3. CLARITIN REDITABS [Suspect]
     Indication: NASOPHARYNGITIS
     Dosage: 10 MG; QD; PO
     Route: 048
     Dates: start: 20061102, end: 20061110
  4. CLARITIN REDITABS [Suspect]
     Indication: RHINITIS
     Dosage: 10 MG; QD; PO
     Route: 048
     Dates: start: 20061102, end: 20061110
  5. CLARITHROMYCIN [Concomitant]
  6. MUCODYNE [Concomitant]
  7. FLUNASE [Concomitant]

REACTIONS (4)
  - DIZZINESS [None]
  - FALL [None]
  - HEADACHE [None]
  - NAUSEA [None]
